FAERS Safety Report 4315643-3 (Version None)
Quarter: 2004Q1

REPORT INFORMATION
  Report Type: 
  Country: None (occurrence: None)
  Receive Date: 20040310
  Receipt Date: 20040301
  Transmission Date: 20041129
  Serious: Yes (Hospitalization)
  Sender: FDA-Public Use
  Company Number: US-JNJFOC-20040300433

PATIENT
  Age: 79 Year
  Sex: Female

DRUGS (13)
  1. DURAGESIC [Suspect]
     Indication: PAIN
     Dosage: 75 UG/HR, 1 IN 72 HOUR, TRANSDERMAL
     Route: 062
     Dates: start: 20040201, end: 20040225
  2. ZOCOR [Concomitant]
  3. ZOLOFT (SERTRALINE HYDROCHLODRIDE) [Concomitant]
  4. POTASSIUM (POTASSIUM) [Concomitant]
  5. DIGOXIN [Concomitant]
  6. ASPIRIN [Concomitant]
  7. METOPROLOL (METOPROLOL) [Concomitant]
  8. LASIX [Concomitant]
  9. ZESTRIL [Concomitant]
  10. NIACIN [Concomitant]
  11. PRILOSEC [Concomitant]
  12. COUMADIN (COUMADIN) [Concomitant]
  13. RESTORIL [Suspect]
     Dates: start: 20020201, end: 20040225

REACTIONS (8)
  - DIARRHOEA [None]
  - DIZZINESS [None]
  - DRUG INTERACTION [None]
  - EYE DISORDER [None]
  - FEELING ABNORMAL [None]
  - MEMORY IMPAIRMENT [None]
  - NAUSEA [None]
  - PHARMACEUTICAL PRODUCT COMPLAINT [None]
